FAERS Safety Report 24526065 (Version 2)
Quarter: 2024Q4

REPORT INFORMATION
  Report Type: Spontaneous
  Country: PL (occurrence: PL)
  Receive Date: 20241021
  Receipt Date: 20241029
  Transmission Date: 20250114
  Serious: No
  Sender: JOHNSON AND JOHNSON
  Company Number: PL-CELLTRION INC.-2024PL024600

PATIENT
  Age: 27 Year
  Sex: Female

DRUGS (1)
  1. REMICADE [Suspect]
     Active Substance: INFLIXIMAB
     Indication: Enteritis
     Route: 041

REACTIONS (2)
  - Drug ineffective [Unknown]
  - Off label use [Unknown]
